FAERS Safety Report 9178060 (Version 1)
Quarter: 2012Q4

REPORT INFORMATION
  Report Type: 
  Country: US (occurrence: US)
  Receive Date: 20121019
  Receipt Date: 20121019
  Transmission Date: 20130627
  Serious: Yes (Hospitalization, Other)
  Sender: FDA-Public Use
  Company Number: US-RB-045708-12

PATIENT
  Age: 23 Year
  Sex: Male

DRUGS (2)
  1. SUBOXONE TABLET [Suspect]
     Indication: PRODUCT USED FOR UNKNOWN INDICATION
     Dosage: Dosing details unspecified
     Route: 065
  2. SUBOXONE FILM [Suspect]
     Indication: PRODUCT USED FOR UNKNOWN INDICATION
     Dosage: Suboxone film, dosing details unspecified
     Route: 065

REACTIONS (4)
  - Blister infected [Not Recovered/Not Resolved]
  - Limb injury [Recovered/Resolved]
  - Blister [Not Recovered/Not Resolved]
  - Substance abuse [Not Recovered/Not Resolved]
